FAERS Safety Report 5710377-2 (Version None)
Quarter: 2008Q2

REPORT INFORMATION
  Report Type: 
  Country: None (occurrence: None)
  Receive Date: 20080418
  Receipt Date: 20080410
  Transmission Date: 20081010
  Serious: Yes (Hospitalization, Other)
  Sender: FDA-Public Use
  Company Number: ES-ABBOTT-08P-144-0446719-00

PATIENT
  Age: 81 Year
  Sex: Female

DRUGS (10)
  1. ERYTHROMYCIN [Suspect]
     Indication: PNEUMONIA
  2. CABERGOLINE [Interacting]
     Indication: PARKINSON'S DISEASE
  3. CABERGOLINE [Interacting]
  4. CABERGOLINE [Interacting]
  5. LEVODOPA [Concomitant]
     Indication: PARKINSON'S DISEASE
  6. LEVODOPA [Concomitant]
  7. LEVODOPA [Concomitant]
  8. HALAZEPAM [Concomitant]
     Indication: PARKINSON'S DISEASE
  9. AMLODIPINE [Concomitant]
     Indication: PARKINSON'S DISEASE
     Dosage: NOT REPORTED
  10. PARACETAMOL [Concomitant]
     Indication: PNEUMONIA
     Dosage: NOT REPORTED

REACTIONS (2)
  - DRUG INTERACTION [None]
  - PSYCHOTIC DISORDER [None]
